FAERS Safety Report 5771621-9 (Version None)
Quarter: 2008Q2

REPORT INFORMATION
  Report Type: 
  Country: None (occurrence: None)
  Receive Date: 20080611
  Receipt Date: 20080527
  Transmission Date: 20081010
  Serious: Yes (Death, Life-Threatening, Hospitalization)
  Sender: FDA-Public Use
  Company Number: 2008001217

PATIENT
  Age: 82 Year
  Sex: Male

DRUGS (3)
  1. ERLOTINIB (ERLOTINIB) (TABLET) (ERLOTINIB) [Suspect]
     Indication: LUNG ADENOCARCINOMA
     Dosage: (150 MG, QD), ORAL
     Route: 048
     Dates: start: 20080219, end: 20080301
  2. PICIBANIL (STREPTOCOCCUS PYOGENES) [Suspect]
     Dates: start: 20071129
  3. SONIFILAN (SIZOFIRAN) [Suspect]
     Dosage: (1 ML, QD)

REACTIONS (9)
  - HEPATITIS FULMINANT [None]
  - HYPERGLYCAEMIA [None]
  - HYPOKALAEMIA [None]
  - MULTI-ORGAN FAILURE [None]
  - REACTION TO PRESERVATIVES [None]
  - RENAL FAILURE ACUTE [None]
  - SENILE DEMENTIA [None]
  - STEVENS-JOHNSON SYNDROME [None]
  - THROMBOCYTOPENIA [None]
